FAERS Safety Report 15587684 (Version 1)
Quarter: 2018Q4

REPORT INFORMATION
  Report Type: Spontaneous
  Country: FR (occurrence: FR)
  Receive Date: 20181105
  Receipt Date: 20181105
  Transmission Date: 20190205
  Serious: Yes (Hospitalization)
  Sender: FDA-Public Use
  Company Number: PHHY2018FR144679

PATIENT
  Age: 75 Year
  Sex: Male

DRUGS (4)
  1. BURINEX [Suspect]
     Active Substance: BUMETANIDE
     Indication: RENAL FAILURE
     Dosage: 5 MG, QD
     Route: 048
     Dates: start: 2013
  2. BISOPROLOL FUMARATE. [Suspect]
     Active Substance: BISOPROLOL FUMARATE
     Indication: CARDIAC VALVE DISEASE
     Dosage: 2.5 MG, QD
     Route: 048
     Dates: start: 1998
  3. TAREG [Suspect]
     Active Substance: VALSARTAN
     Indication: CARDIAC VALVE DISEASE
     Dosage: 40 MG, QD
     Route: 048
     Dates: start: 2008
  4. EUPANTOL [Suspect]
     Active Substance: PANTOPRAZOLE SODIUM
     Indication: PROPHYLAXIS
     Dosage: 40 MG, QD
     Route: 065
     Dates: start: 2008

REACTIONS (1)
  - Pruritus [Not Recovered/Not Resolved]

NARRATIVE: CASE EVENT DATE: 2014
